FAERS Safety Report 11823767 (Version 1)
Quarter: 2015Q4

REPORT INFORMATION
  Report Type: Spontaneous
  Country: US (occurrence: US)
  Receive Date: 20151210
  Receipt Date: 20151210
  Transmission Date: 20160305
  Serious: Yes (Hospitalization)
  Sender: FDA-Public Use
  Company Number: US-ASTRAZENECA-2015SF19535

PATIENT
  Age: 417 Day
  Sex: Male
  Weight: 7.3 kg

DRUGS (1)
  1. SYNAGIS [Suspect]
     Active Substance: PALIVIZUMAB
     Indication: ANTIVIRAL PROPHYLAXIS
     Route: 030
     Dates: start: 20151120

REACTIONS (1)
  - Rhinovirus infection [Not Recovered/Not Resolved]

NARRATIVE: CASE EVENT DATE: 20151122
